FAERS Safety Report 11743925 (Version 1)
Quarter: 2015Q4

REPORT INFORMATION
  Report Type: Report from Study
  Country: AU (occurrence: AU)
  Receive Date: 20151116
  Receipt Date: 20151116
  Transmission Date: 20160304
  Serious: Yes (Other)
  Sender: FDA-Public Use
  Company Number: AU-PFIZER INC-2015379362

PATIENT
  Age: 50 Year
  Sex: Male

DRUGS (2)
  1. VINCRISTINE SULFATE. [Suspect]
     Active Substance: VINCRISTINE SULFATE
     Indication: SMALL CELL CARCINOMA
     Dosage: 1.0 MG/M2, CYCLIC, (Q21D)
  2. DOXORUBICIN HCL [Suspect]
     Active Substance: DOXORUBICIN HYDROCHLORIDE
     Indication: SMALL CELL CARCINOMA
     Dosage: 30 MG/M2, CYCLIC, (Q21D)

REACTIONS (2)
  - Anaemia [Not Recovered/Not Resolved]
  - Fatigue [Unknown]
